FAERS Safety Report 6632181-3 (Version None)
Quarter: 2010Q1

REPORT INFORMATION
  Report Type: 
  Country: None (occurrence: None)
  Receive Date: 20100312
  Receipt Date: 20100308
  Transmission Date: 20100710
  Serious: Yes (Death)
  Sender: FDA-Public Use
  Company Number: BR-ASTRAZENECA-2010SE06185

PATIENT
  Sex: Male
  Weight: 86 kg

DRUGS (12)
  1. CRESTOR [Suspect]
     Indication: HYPERCHOLESTEROLAEMIA
     Route: 048
     Dates: start: 20090317
  2. DIOVAN HCT [Concomitant]
     Indication: HYPERTENSION
     Route: 048
     Dates: start: 20090317
  3. SERTRALINA [Concomitant]
     Route: 048
     Dates: start: 20090317, end: 20090714
  4. CLOPIDOGREL [Concomitant]
     Route: 048
     Dates: start: 20090317, end: 20090701
  5. DOXAZOSIN MESYLATE [Concomitant]
     Route: 048
     Dates: start: 20090314
  6. CITALOPRAM HYDROBROMIDE [Concomitant]
     Route: 048
     Dates: start: 20090824
  7. ENDOFOLIN [Concomitant]
     Route: 048
     Dates: start: 20090824
  8. ASPIRIN [Concomitant]
     Route: 048
     Dates: start: 20090317
  9. LEXOTAN [Concomitant]
     Route: 048
     Dates: start: 20090317, end: 20090714
  10. FINASTERIDE [Concomitant]
     Route: 048
     Dates: start: 20090714
  11. NAUSEDRON [Concomitant]
     Route: 048
     Dates: start: 20090824
  12. DIOSMIN [Concomitant]
     Route: 048
     Dates: start: 20090824

REACTIONS (9)
  - ANAEMIA [None]
  - DIZZINESS [None]
  - ERYSIPELAS [None]
  - HAEMATURIA [None]
  - LUNG CANCER METASTATIC [None]
  - LYMPHADENOPATHY [None]
  - MUSCULAR WEAKNESS [None]
  - OEDEMA PERIPHERAL [None]
  - SYNOVIAL CYST [None]
